APPROVED DRUG PRODUCT: PANMYCIN
Active Ingredient: TETRACYCLINE HYDROCHLORIDE
Strength: 250MG
Dosage Form/Route: TABLET;ORAL
Application: A061705 | Product #001
Applicant: PHARMACIA AND UPJOHN CO
Approved: Approved Prior to Jan 1, 1982 | RLD: No | RS: No | Type: DISCN